FAERS Safety Report 13080640 (Version 1)
Quarter: 2017Q1

REPORT INFORMATION
  Report Type: Spontaneous
  Country: US (occurrence: US)
  Receive Date: 20170103
  Receipt Date: 20170103
  Transmission Date: 20170428
  Serious: Yes (Hospitalization, Other)
  Sender: FDA-Public Use
  Company Number: US-AMGEN-USASP2016152239

PATIENT
  Age: 61 Year
  Sex: Female

DRUGS (2)
  1. CLARITIN [Concomitant]
     Active Substance: LORATADINE
     Indication: PROPHYLAXIS
     Dosage: UNK
     Dates: start: 2016
  2. NEULASTA [Suspect]
     Active Substance: PEGFILGRASTIM
     Indication: NEUTROPENIA
     Dosage: 6 MG, PER CHEMO REGIM
     Route: 065
     Dates: start: 20161029

REACTIONS (12)
  - Hospitalisation [Recovered/Resolved]
  - Abdominal pain [Unknown]
  - Diarrhoea [Unknown]
  - Underdose [Unknown]
  - Chills [Unknown]
  - Neutropenia [Unknown]
  - Bone pain [Unknown]
  - Gastrointestinal disorder [Unknown]
  - Dehydration [Unknown]
  - White blood cell count increased [Unknown]
  - Wrong technique in product usage process [Unknown]
  - Pyrexia [Unknown]

NARRATIVE: CASE EVENT DATE: 2016
